FAERS Safety Report 21309964 (Version 1)
Quarter: 2022Q3

REPORT INFORMATION
  Report Type: Report from Study
  Country: DE (occurrence: DE)
  Receive Date: 20220909
  Receipt Date: 20220909
  Transmission Date: 20221026
  Serious: Yes (Hospitalization)
  Sender: FDA-Public Use
  Company Number: DE-JNJFOC-20220322537

PATIENT
  Age: 26 Year
  Sex: Male
  Weight: 58 kg

DRUGS (7)
  1. INFLIXIMAB [Suspect]
     Active Substance: INFLIXIMAB
     Indication: Crohn^s disease
     Route: 041
     Dates: start: 20110801
  2. INFLIXIMAB [Suspect]
     Active Substance: INFLIXIMAB
     Route: 041
     Dates: start: 20140821
  3. HUMIRA [Concomitant]
     Active Substance: ADALIMUMAB
  4. MESALAMINE [Concomitant]
     Active Substance: MESALAMINE
  5. BROMAZEPAM [Concomitant]
     Active Substance: BROMAZEPAM
  6. PREDNISOLONE [Concomitant]
     Active Substance: PREDNISOLONE
  7. METAMIZOLE [Concomitant]
     Active Substance: METAMIZOLE

REACTIONS (1)
  - Large intestinal stenosis [Recovered/Resolved]

NARRATIVE: CASE EVENT DATE: 20220125
